FAERS Safety Report 5100510-8 (Version None)
Quarter: 2006Q3

REPORT INFORMATION
  Report Type: 
  Country: None (occurrence: None)
  Receive Date: 20060907
  Receipt Date: 20060907
  Transmission Date: 20061208
  Serious: No
  Sender: FDA-Public Use
  Company Number: None

PATIENT
  Sex: Female
  Weight: 41.7309 kg

DRUGS (2)
  1. CLONAZEPAM [Suspect]
     Indication: PANIC DISORDER
     Dosage: 2 MG BID ORAL
     Route: 048
     Dates: start: 20060101, end: 20060201
  2. MORPHINE SULFATE SUSTAINED RELEASE [Suspect]
     Indication: PELVIC PAIN
     Dosage: 15 MG TID ORAL
     Route: 048
     Dates: start: 20050701, end: 20050801

REACTIONS (2)
  - DRUG INEFFECTIVE [None]
  - THERAPEUTIC RESPONSE UNEXPECTED WITH DRUG SUBSTITUTION [None]
